FAERS Safety Report 9199870 (Version 2)
Quarter: 2013Q1

REPORT INFORMATION
  Report Type: Spontaneous
  Country: US (occurrence: US)
  Receive Date: 20130329
  Receipt Date: 20130329
  Transmission Date: 20140127
  Serious: No
  Sender: FDA-Public Use
  Company Number: US-GALDERMA-US13000470

PATIENT
  Age: 33 Year
  Sex: Female

DRUGS (14)
  1. DIFFERIN [Suspect]
     Indication: ACNE
     Route: 061
     Dates: start: 20121231, end: 20130121
  2. LANCOME MILKY BASED CLEANSER FOR DRY SKIN [Concomitant]
     Indication: THERAPEUTIC SKIN CARE TOPICAL
     Route: 061
  3. NEUTROGENA TONER [Concomitant]
     Indication: THERAPEUTIC SKIN CARE TOPICAL
     Route: 061
  4. NEUTROGENA MOISTURIZER [Concomitant]
     Indication: THERAPEUTIC SKIN CARE TOPICAL
     Route: 061
  5. SALMA HAYEK NUANCE MAKEUP [Concomitant]
     Indication: THERAPEUTIC SKIN CARE TOPICAL
     Route: 061
  6. NEURONTIN [Concomitant]
     Indication: OSTEOARTHRITIS
     Route: 048
  7. MOBIC [Concomitant]
     Indication: OSTEOARTHRITIS
     Route: 048
  8. BIRTH CONTROL [Concomitant]
     Indication: CONTRACEPTION
     Route: 048
  9. VICODIN [Concomitant]
     Indication: PAIN MANAGEMENT
     Route: 048
  10. ULTRAM [Concomitant]
     Indication: PAIN MANAGEMENT
     Route: 048
  11. LANCOME MAKEUP [Concomitant]
     Route: 061
  12. MELOXICAM [Concomitant]
     Route: 048
  13. GABAPENTIN [Concomitant]
     Route: 048
  14. CLINDAMYCIN PHOSPHATE, BENZOYL PEROXIDE GEL [Concomitant]

REACTIONS (6)
  - Skin tightness [Recovered/Resolved]
  - Skin exfoliation [Recovered/Resolved]
  - Erythema [Recovered/Resolved]
  - Skin burning sensation [Recovered/Resolved]
  - Chemical injury [Recovered/Resolved]
  - Pain of skin [Recovered/Resolved]
